FAERS Safety Report 8405459-0 (Version None)
Quarter: 2012Q2

REPORT INFORMATION
  Report Type: 
  Country: None (occurrence: None)
  Receive Date: 20120604
  Receipt Date: 20120525
  Transmission Date: 20120825
  Serious: Yes (Other)
  Sender: FDA-Public Use
  Company Number: 2007BI020432

PATIENT
  Age: 28 Year
  Sex: Female

DRUGS (10)
  1. POTASSIUM CHLORIDE [Concomitant]
  2. PROZAC [Concomitant]
  3. TOPROL-XL [Concomitant]
  4. HYDROCHLOROTHIAZIDE [Concomitant]
  5. TYSABRI [Suspect]
     Indication: MULTIPLE SCLEROSIS
     Route: 042
     Dates: end: 20070902
  6. MULTI-VITAMIN [Concomitant]
  7. COZAAR [Concomitant]
  8. AMANTADINE HCL [Concomitant]
  9. CALCIUM WITH VITAMIN D [Concomitant]
  10. FLEXERIL [Concomitant]

REACTIONS (1)
  - ABORTION SPONTANEOUS [None]
